FAERS Safety Report 18465438 (Version 2)
Quarter: 2020Q4

REPORT INFORMATION
  Report Type: Report from Study
  Country: None (occurrence: US)
  Receive Date: 20201105
  Receipt Date: 20201221
  Transmission Date: 20210114
  Serious: Yes (Other)
  Sender: FDA-Public Use
  Company Number: US-ABBVIE-20K-163-3524933-00

PATIENT
  Sex: Female

DRUGS (1)
  1. HUMIRA [Suspect]
     Active Substance: ADALIMUMAB
     Indication: CROHN^S DISEASE
     Route: 058

REACTIONS (6)
  - COVID-19 [Unknown]
  - Fistula [Unknown]
  - Haematochezia [Unknown]
  - Impaired healing [Unknown]
  - Exposure to SARS-CoV-2 [Unknown]
  - Haemoglobin decreased [Unknown]
